FAERS Safety Report 16876220 (Version 1)
Quarter: 2019Q4

REPORT INFORMATION
  Report Type: Spontaneous
  Country: US (occurrence: US)
  Receive Date: 20191002
  Receipt Date: 20191002
  Transmission Date: 20200122
  Serious: No
  Sender: FDA-Public Use
  Company Number: US-GW PHARMA-201907USGW2692

PATIENT

DRUGS (18)
  1. VALPROIC ACID. [Concomitant]
     Active Substance: VALPROIC ACID
     Dosage: 650 MILLIGRAM, QD (4ML Q AM, 4 ML Q PM AND 5 ML QHS)
     Route: 048
  2. GLYCOPYRROLATE [GLYCOPYRRONIUM] [Concomitant]
     Indication: PRODUCT USED FOR UNKNOWN INDICATION
     Dosage: 1 MG (1MG=1TABLET), TID
  3. EPIDIOLEX [Suspect]
     Active Substance: CANNABIDIOL
     Dosage: 33.17 MG/KG/DAY, 350 MILLIGRAM, BID
     Route: 048
     Dates: start: 2019, end: 2019
  4. EPIDIOLEX [Suspect]
     Active Substance: CANNABIDIOL
     Dosage: 4.73 MG/KG/DAY, 50 MILLIGRAM, BID
     Dates: start: 2019
  5. TOPAMAX [Concomitant]
     Active Substance: TOPIRAMATE
     Dosage: 78 MG, BID
  6. VALPROIC ACID. [Concomitant]
     Active Substance: VALPROIC ACID
     Dosage: 200 MG, TID
     Route: 048
  7. LEVETIRACETAM. [Concomitant]
     Active Substance: LEVETIRACETAM
     Indication: PRODUCT USED FOR UNKNOWN INDICATION
     Dosage: 400 MG, BID (400 MG=4ML)
     Route: 048
  8. KEPPRA [Concomitant]
     Active Substance: LEVETIRACETAM
     Indication: SEIZURE
     Dosage: 400 MG, BID
     Route: 065
  9. ALBUTEROL [SALBUTAMOL SULFATE] [Concomitant]
     Active Substance: ALBUTEROL SULFATE
     Indication: PRODUCT USED FOR UNKNOWN INDICATION
     Dosage: 0.083 % (2.5MG/3ML), PRN
  10. VALPROIC ACID. [Concomitant]
     Active Substance: VALPROIC ACID
     Dosage: 200/200/250 MG,UNK
     Route: 048
  11. TRIAMCINOLONE [Concomitant]
     Active Substance: TRIAMCINOLONE
     Indication: RASH
     Dosage: 0.1 % (0.1% TOPICAL CREAM 1 APP, TOPICAL), BID
     Route: 061
  12. NEXIUM [Concomitant]
     Active Substance: ESOMEPRAZOLE MAGNESIUM
     Indication: PRODUCT USED FOR UNKNOWN INDICATION
     Dosage: 2.5 MG ORAL POWDER FOR RECONSTITUIN, DELAYED RELEASE, UNK
     Route: 048
  13. TOPAMAX [Concomitant]
     Active Substance: TOPIRAMATE
     Indication: SEIZURE
     Dosage: 78 MILLIGRAM, BID
  14. VALPROIC ACID. [Concomitant]
     Active Substance: VALPROIC ACID
     Indication: SEIZURE
     Dosage: 800 MILLIGRAM, QD (5ML Q AM, 5 ML Q PM AND 6 ML QHS)
     Route: 048
  15. EPIDIOLEX [Suspect]
     Active Substance: CANNABIDIOL
     Indication: LENNOX-GASTAUT SYNDROME
     Dosage: 9.47 MG/KG/DAY, 100 MILLIGRAM, BID
     Route: 048
     Dates: start: 20190211, end: 2019
  16. CUVPOSA [GLYCOPYRRONIUM] [Concomitant]
     Indication: PRODUCT USED FOR UNKNOWN INDICATION
     Dosage: 1MG/5ML, UNK
     Route: 048
  17. DIAZEPAM. [Concomitant]
     Active Substance: DIAZEPAM
     Indication: PRODUCT USED FOR UNKNOWN INDICATION
     Dosage: 1 MG/ML, QID
  18. ZANTAC 75 [Concomitant]
     Active Substance: RANITIDINE HYDROCHLORIDE
     Indication: PRODUCT USED FOR UNKNOWN INDICATION
     Dosage: 75 MG (75 MG= 1TABLET, G TUBE, DAILY, CAN GIVE ONE TO TWO TABLETS DAILY CRUSHED INTO GTUBE), QD

REACTIONS (3)
  - Product use in unapproved indication [Unknown]
  - Peripheral swelling [Unknown]
  - Weight increased [Unknown]

NARRATIVE: CASE EVENT DATE: 2019
